FAERS Safety Report 17883960 (Version 1)
Quarter: 2020Q2

REPORT INFORMATION
  Report Type: Spontaneous
  Country: US (occurrence: US)
  Receive Date: 20200610
  Receipt Date: 20200610
  Transmission Date: 20200714
  Serious: Yes (Hospitalization)
  Sender: FDA-Public Use
  Company Number: None

PATIENT
  Age: 62 Year
  Sex: Female

DRUGS (15)
  1. TOBRAMYCIN. [Concomitant]
     Active Substance: TOBRAMYCIN
  2. TACROLIMUS 0.5MG CAP [Suspect]
     Active Substance: TACROLIMUS
     Indication: LUNG TRANSPLANT
     Route: 048
     Dates: start: 20190328
  3. BUT/APAP/CAF [Concomitant]
  4. CELLCEPT [Concomitant]
     Active Substance: MYCOPHENOLATE MOFETIL\MYCOPHENOLATE MOFETIL HYDROCHLORIDE
  5. TACROLIMUS  1MG CAP [Suspect]
     Active Substance: TACROLIMUS
     Indication: LUNG TRANSPLANT
     Route: 048
  6. ENVARSUS XR [Concomitant]
     Active Substance: TACROLIMUS
  7. ENOXAPARIN [Concomitant]
     Active Substance: ENOXAPARIN
  8. OXYCONTIN [Concomitant]
     Active Substance: OXYCODONE HYDROCHLORIDE
  9. PROGRAF [Concomitant]
     Active Substance: TACROLIMUS
  10. SUMATRIPTAN. [Concomitant]
     Active Substance: SUMATRIPTAN
  11. OXYCODONE [Concomitant]
     Active Substance: OXYCODONE
  12. ATOVAQUONE. [Concomitant]
     Active Substance: ATOVAQUONE
  13. BUT/ASA/CAFF [Concomitant]
     Active Substance: BUTALBITAL\CAFFEINE\SALICYLIC ACID
  14. ALBUTEROL NEB [Concomitant]
     Active Substance: ALBUTEROL
  15. ONDANSETRON [Concomitant]
     Active Substance: ONDANSETRON

REACTIONS (1)
  - Limb injury [None]

NARRATIVE: CASE EVENT DATE: 202005
